FAERS Safety Report 9292285 (Version 1)
Quarter: 2013Q2

REPORT INFORMATION
  Report Type: Report from Study
  Country: BR (occurrence: BR)
  Receive Date: 20130516
  Receipt Date: 20130516
  Transmission Date: 20140414
  Serious: Yes (Other)
  Sender: FDA-Public Use
  Company Number: PHHY2013BR048260

PATIENT
  Sex: Male

DRUGS (2)
  1. DIOVAN AMLO FIX [Suspect]
     Indication: BLOOD PRESSURE ABNORMAL
     Dosage: UNK UKN(3209/5 MG), DAILY
  2. RASILEZ [Suspect]
     Indication: BLOOD PRESSURE ABNORMAL
     Dosage: UKN UKN(300 MG), DAILIY

REACTIONS (1)
  - Congenital cystic kidney disease [Unknown]
